FAERS Safety Report 6399021-1 (Version None)
Quarter: 2009Q4

REPORT INFORMATION
  Report Type: 
  Country: None (occurrence: None)
  Receive Date: 20091013
  Receipt Date: 20091008
  Transmission Date: 20100525
  Serious: Yes (Death)
  Sender: FDA-Public Use
  Company Number: US-GILEAD-2009-0024494

PATIENT
  Sex: Female
  Weight: 49.032 kg

DRUGS (13)
  1. LETAIRIS [Suspect]
     Indication: PULMONARY ARTERIAL HYPERTENSION
     Route: 048
     Dates: start: 20080101
  2. REVATIO [Concomitant]
  3. COUMADIN [Concomitant]
  4. OXYGEN [Concomitant]
  5. ADVAIR DISKUS 100/50 [Concomitant]
  6. SPIRIVA [Concomitant]
  7. LORAZEPAM [Concomitant]
  8. PROTONIX [Concomitant]
  9. AMBIEN [Concomitant]
  10. LEVOTHYROXINE [Concomitant]
  11. COLACE [Concomitant]
  12. LEXAPRO [Concomitant]
  13. CALCIUM [Concomitant]

REACTIONS (1)
  - RESPIRATORY FAILURE [None]
